FAERS Safety Report 23527473 (Version 1)
Quarter: 2024Q1

REPORT INFORMATION
  Report Type: Spontaneous
  Country: US (occurrence: US)
  Receive Date: 20240215
  Receipt Date: 20240215
  Transmission Date: 20240410
  Serious: No
  Sender: FDA-Public Use
  Company Number: US-PFIZER INC-202400041020

PATIENT
  Age: 79 Year
  Sex: Female

DRUGS (2)
  1. VELSIPITY [Suspect]
     Active Substance: ETRASIMOD ARGININE
     Dosage: TAKING HALF A PILL EVERY OTHER DAY
  2. VELSIPITY [Suspect]
     Active Substance: ETRASIMOD ARGININE
     Dosage: ONE PILL EVERY OTHER DAY

REACTIONS (2)
  - Drug hypersensitivity [Unknown]
  - Intentional product misuse [Unknown]
